FAERS Safety Report 7438064-3 (Version None)
Quarter: 2011Q2

REPORT INFORMATION
  Report Type: 
  Country: None (occurrence: None)
  Receive Date: 20110426
  Receipt Date: 20110420
  Transmission Date: 20111010
  Serious: Yes (Death, Other)
  Sender: FDA-Public Use
  Company Number: PHHY2011TW06332

PATIENT
  Sex: Male

DRUGS (1)
  1. EXJADE [Suspect]
     Indication: APLASTIC ANAEMIA
     Dosage: 1500 MG, UNK
     Route: 048

REACTIONS (5)
  - FALL [None]
  - APLASTIC ANAEMIA [None]
  - DISEASE PROGRESSION [None]
  - MENTAL DISORDER [None]
  - DELIRIUM [None]
